FAERS Safety Report 9118323 (Version 1)
Quarter: 2013Q1

REPORT INFORMATION
  Report Type: Spontaneous
  Country: US (occurrence: None)
  Receive Date: 20130221
  Receipt Date: 20130221
  Transmission Date: 20140127
  Serious: Yes (Life-Threatening, Hospitalization, Other)
  Sender: FDA-Public Use
  Company Number: None

PATIENT
  Age: 52 Year
  Sex: Male
  Weight: 95.26 kg

DRUGS (1)
  1. DULERA 100MCG/5MCG [Suspect]
     Indication: MEDICATION ERROR
     Dosage: 13 1 PUFF DAILY PO
     Route: 048
     Dates: start: 20120913, end: 20120916

REACTIONS (11)
  - Malaise [None]
  - Drug prescribing error [None]
  - Asthenia [None]
  - Dry mouth [None]
  - Blood pressure increased [None]
  - Heart rate increased [None]
  - Cold sweat [None]
  - Abdominal pain upper [None]
  - Muscle spasms [None]
  - Nausea [None]
  - Chest pain [None]
